FAERS Safety Report 7386906-2 (Version None)
Quarter: 2011Q1

REPORT INFORMATION
  Report Type: 
  Country: None (occurrence: None)
  Receive Date: 20110331
  Receipt Date: 20110322
  Transmission Date: 20110831
  Serious: Yes (Hospitalization)
  Sender: FDA-Public Use
  Company Number: US-ASTRAZENECA-2011SE09282

PATIENT
  Age: 51 Year
  Sex: Male
  Weight: 77.6 kg

DRUGS (4)
  1. SEROQUEL XR [Suspect]
     Route: 048
  2. SEROQUEL XR [Suspect]
     Route: 048
  3. SEROQUEL XR [Suspect]
     Route: 048
  4. SEROQUEL XR [Suspect]
     Indication: BIPOLAR DISORDER
     Route: 048

REACTIONS (5)
  - DRUG DOSE OMISSION [None]
  - HOSPITALISATION [None]
  - DRUG WITHDRAWAL SYNDROME [None]
  - THINKING ABNORMAL [None]
  - INSOMNIA [None]
